FAERS Safety Report 20834731 (Version 4)
Quarter: 2022Q4

REPORT INFORMATION
  Report Type: Report from Study
  Country: US (occurrence: US)
  Receive Date: 20220516
  Receipt Date: 20221115
  Transmission Date: 20230113
  Serious: Yes (Other)
  Sender: FDA-Public Use
  Company Number: US-NOVARTISTESTPH-NVSC2022US112416

PATIENT
  Sex: Male

DRUGS (1)
  1. ENTRESTO [Suspect]
     Active Substance: SACUBITRIL\VALSARTAN
     Indication: Product used for unknown indication
     Dosage: UNK UNK, BID (36MG/39MG IN AM AND 48MG/52MG IN PM)
     Route: 048

REACTIONS (3)
  - Cardiac failure congestive [Unknown]
  - COVID-19 [Unknown]
  - Wrong technique in product usage process [Unknown]
